FAERS Safety Report 7465185-1 (Version None)
Quarter: 2011Q2

REPORT INFORMATION
  Report Type: 
  Country: None (occurrence: None)
  Receive Date: 20110509
  Receipt Date: 20110502
  Transmission Date: 20111010
  Serious: Yes (Hospitalization)
  Sender: FDA-Public Use
  Company Number: FR-PFIZER INC-2011093454

PATIENT
  Age: 97 Year
  Sex: Male

DRUGS (13)
  1. EQUANIL [Suspect]
     Indication: AGITATION
     Dosage: 250 MG, 2X/DAY
     Route: 048
     Dates: start: 20100710, end: 20100712
  2. XANAX [Suspect]
     Indication: AGITATION
     Dosage: 0.25 MG, UNK
     Route: 048
     Dates: start: 20100714, end: 20100720
  3. DIAMICRON [Suspect]
     Indication: TYPE 2 DIABETES MELLITUS
     Dosage: 30 MG, 1X/DAY
     Route: 048
     Dates: end: 20100720
  4. TIAPRIDAL [Suspect]
     Indication: AGITATION
     Dosage: 100 MG, 2X/DAY
     Route: 048
     Dates: end: 20100720
  5. LASIX [Suspect]
     Dosage: 40 MG, 1X/DAY
     Route: 048
     Dates: end: 20100701
  6. EQUANIL [Suspect]
     Dosage: 250 MG, 3X/DAY
     Dates: start: 20100713, end: 20100714
  7. DUPHALAC [Concomitant]
     Indication: CONSTIPATION
     Dosage: 2 DF, 1X/DAY IN THE MORNING
     Route: 048
  8. STILNOX [Concomitant]
     Indication: INSOMNIA
     Dosage: 10 MG, 1X/DAY
     Route: 048
  9. SERESTA [Concomitant]
     Indication: ANXIETY
     Dosage: 10MG TABLET, 1/4 MORNING AND NOON AND 1 IN THE EVENING
     Route: 048
     Dates: start: 20100720
  10. MIRTAZAPINE [Suspect]
     Indication: AGITATION
     Dosage: UNK
     Route: 048
     Dates: start: 20100714, end: 20100720
  11. METFORMIN HCL [Suspect]
     Indication: TYPE 2 DIABETES MELLITUS
     Dosage: 700 MG, 1X/DAY
     Route: 048
     Dates: end: 20100720
  12. ROCEPHIN [Concomitant]
     Dosage: 1 G, 1X/DAY
     Route: 058
     Dates: start: 20100720, end: 20100728
  13. NOCTRAN [Suspect]
     Indication: INSOMNIA
     Dosage: 10 MG, 1X/DAY AT BEDTIME
     Route: 048
     Dates: end: 20100714

REACTIONS (1)
  - HEPATITIS CHOLESTATIC [None]
